FAERS Safety Report 8231741-6 (Version None)
Quarter: 2012Q1

REPORT INFORMATION
  Report Type: 
  Country: None (occurrence: None)
  Receive Date: 20120323
  Receipt Date: 20120313
  Transmission Date: 20120608
  Serious: Yes (Other)
  Sender: FDA-Public Use
  Company Number: FR-BRISTOL-MYERS SQUIBB COMPANY-16456634

PATIENT
  Age: 65 Year
  Sex: Male

DRUGS (1)
  1. BARACLUDE [Suspect]

REACTIONS (3)
  - HEPATIC NEOPLASM MALIGNANT [None]
  - VIRAL LOAD INCREASED [None]
  - PORTAL VEIN THROMBOSIS [None]
